FAERS Safety Report 9262958 (Version 1)
Quarter: 2013Q2

REPORT INFORMATION
  Report Type: Spontaneous
  Country: US (occurrence: None)
  Receive Date: 20130426
  Receipt Date: 20130426
  Transmission Date: 20140414
  Serious: No
  Sender: FDA-Public Use
  Company Number: None

PATIENT
  Age: 59 Year
  Sex: Female
  Weight: 68.04 kg

DRUGS (4)
  1. SIMVASTATIN [Suspect]
     Indication: BLOOD CHOLESTEROL INCREASED
     Route: 048
  2. LISINOPRIL [Concomitant]
  3. CHOLOTHALID [Concomitant]
  4. ATENOLOL [Concomitant]

REACTIONS (6)
  - Myalgia [None]
  - Fatigue [None]
  - Insomnia [None]
  - Facial pain [None]
  - Nausea [None]
  - Arthralgia [None]
